FAERS Safety Report 9819608 (Version 2)
Quarter: 2014Q1

REPORT INFORMATION
  Report Type: Spontaneous
  Country: GB (occurrence: GB)
  Receive Date: 20140115
  Receipt Date: 20140219
  Transmission Date: 20141002
  Serious: Yes (Other)
  Sender: FDA-Public Use
  Company Number: GB-MYLANLABS-2014S1000191

PATIENT
  Age: 86 Year
  Sex: Female

DRUGS (3)
  1. METOPROLOL [Suspect]
     Indication: HYPERTENSION
     Route: 048
  2. METOPROLOL [Suspect]
     Indication: TACHYCARDIA
     Route: 048
  3. BENDROFLUMETHIAZIDE [Concomitant]
     Indication: DIURETIC THERAPY

REACTIONS (2)
  - Cataract [Unknown]
  - Dry eye [Unknown]
